FAERS Safety Report 13818186 (Version 1)
Quarter: 2017Q3

REPORT INFORMATION
  Report Type: Spontaneous
  Country: US (occurrence: US)
  Receive Date: 20170731
  Receipt Date: 20170731
  Transmission Date: 20171127
  Serious: No
  Sender: FDA-Public Use
  Company Number: US-ROCHE-660114

PATIENT
  Age: 81 Year
  Sex: Female

DRUGS (1)
  1. BONIVA [Suspect]
     Active Substance: IBANDRONATE SODIUM
     Indication: OSTEOPOROSIS
     Dosage: FORM: INFUSION
     Route: 042

REACTIONS (7)
  - Peripheral swelling [Not Recovered/Not Resolved]
  - Rash macular [Not Recovered/Not Resolved]
  - Vasodilatation [Not Recovered/Not Resolved]
  - Swelling face [Not Recovered/Not Resolved]
  - Joint swelling [Not Recovered/Not Resolved]
  - Abdominal distension [Not Recovered/Not Resolved]
  - Peripheral swelling [Not Recovered/Not Resolved]

NARRATIVE: CASE EVENT DATE: 20091001
